FAERS Safety Report 25290608 (Version 1)
Quarter: 2025Q2

REPORT INFORMATION
  Report Type: Spontaneous
  Country: US (occurrence: US)
  Receive Date: 20250510
  Receipt Date: 20250510
  Transmission Date: 20250716
  Serious: No
  Sender: Apozeal Pharmaceuticals
  Company Number: US-Apozeal Pharmaceuticals-2176523

PATIENT

DRUGS (6)
  1. HYDROXYZINE HYDROCHLORIDE [Suspect]
     Active Substance: HYDROXYZINE HYDROCHLORIDE
     Indication: Product used for unknown indication
  2. XYZAL [Suspect]
     Active Substance: LEVOCETIRIZINE DIHYDROCHLORIDE
  3. Pseudo-brom [Concomitant]
  4. AZELASTINE HYDROCHLORIDE [Suspect]
     Active Substance: AZELASTINE HYDROCHLORIDE
  5. CLARITIN [Suspect]
     Active Substance: LORATADINE
  6. SINGULAIR [Suspect]
     Active Substance: MONTELUKAST SODIUM

REACTIONS (4)
  - Eye pruritus [Unknown]
  - Sneezing [Unknown]
  - Skin burning sensation [Unknown]
  - Foreign body sensation in eyes [Unknown]
